FAERS Safety Report 8018747-7 (Version None)
Quarter: 2012Q1

REPORT INFORMATION
  Report Type: 
  Country: None (occurrence: None)
  Receive Date: 20120103
  Receipt Date: 20120103
  Transmission Date: 20120608
  Serious: Yes (Disabling)
  Sender: FDA-Public Use
  Company Number: None

PATIENT
  Sex: Male
  Weight: 81.646 kg

DRUGS (1)
  1. AMIODARONE HCL [Suspect]
     Dates: start: 20111023, end: 20111111

REACTIONS (1)
  - PULMONARY TOXICITY [None]
